FAERS Safety Report 6143271-6 (Version None)
Quarter: 2009Q2

REPORT INFORMATION
  Report Type: 
  Country: None (occurrence: None)
  Receive Date: 20090401
  Receipt Date: 20090324
  Transmission Date: 20091009
  Serious: Yes (Other)
  Sender: FDA-Public Use
  Company Number: 189301USA

PATIENT
  Age: 76 Year
  Sex: Female

DRUGS (1)
  1. ALENDRONATE SODIUM [Suspect]
     Dosage: 70 MG ONCE EVERY OTHER WEEK (1 IN 2 WK), ORAL
     Route: 048
     Dates: start: 20080901

REACTIONS (2)
  - FALL [None]
  - JOINT SWELLING [None]
